FAERS Safety Report 5615740-6 (Version None)
Quarter: 2008Q1

REPORT INFORMATION
  Report Type: 
  Country: None (occurrence: None)
  Receive Date: 20080201
  Receipt Date: 20080122
  Transmission Date: 20080703
  Serious: Yes (Death, Life-Threatening)
  Sender: FDA-Public Use
  Company Number: 070907-0000824

PATIENT
  Age: 32 Year
  Sex: Male

DRUGS (9)
  1. COSMEGEN [Suspect]
     Indication: GERM CELL CANCER
     Dosage: 1.6 MG/M**2; Q2W; IV
     Route: 042
     Dates: start: 20010315, end: 20010423
  2. CISPLATIN [Suspect]
     Indication: GERM CELL CANCER
     Dates: start: 20010316, end: 20010425
  3. ETOPOSIDE [Suspect]
     Indication: GERM CELL CANCER
     Dates: start: 20010315, end: 20010426
  4. METHOTREXATE [Suspect]
     Indication: GERM CELL CANCER
     Dates: start: 20010315, end: 20010423
  5. ACETAZOLAMIDE [Concomitant]
  6. DEXTROSE WITH POTASSIUM BICARBONATE AND S [Concomitant]
  7. .. [Concomitant]
  8. FILGRASTIM [Concomitant]
  9. FOLINIC ACID [Concomitant]

REACTIONS (6)
  - BLOOD POTASSIUM DECREASED [None]
  - FEBRILE NEUTROPENIA [None]
  - HAEMOGLOBIN DECREASED [None]
  - NEUTROPENIC SEPSIS [None]
  - PLATELET COUNT DECREASED [None]
  - SEPSIS [None]
